FAERS Safety Report 6153099-9 (Version None)
Quarter: 2009Q2

REPORT INFORMATION
  Report Type: 
  Country: None (occurrence: None)
  Receive Date: 20090409
  Receipt Date: 20090403
  Transmission Date: 20091009
  Serious: Yes (Life-Threatening, Disabling)
  Sender: FDA-Public Use
  Company Number: A0584468A

PATIENT
  Age: 51 Year
  Sex: Male

DRUGS (13)
  1. ZOFRAN [Suspect]
     Indication: PROPHYLAXIS OF NAUSEA AND VOMITING
     Dosage: 4 MG / SINGLE DOSE / INTRAVENOUS
     Route: 042
     Dates: start: 20051130, end: 20051130
  2. DEXTROSE 5% AND SODIUM CHLORIDE 0.45% IN PLASTIC CONTAINER [Concomitant]
  3. ATORVASTATIN CALCIUM [Concomitant]
  4. MULTI-VITAMIN [Concomitant]
  5. GLUCOSAMINE CHONDROITIN C [Concomitant]
  6. ASPIRIN [Concomitant]
  7. CEFAZOLIN SODIUM [Concomitant]
  8. ROCURONIUM BROMIDE [Concomitant]
  9. ISOFLURANE [Concomitant]
  10. PROPOFOL [Concomitant]
  11. FENTANYL [Concomitant]
  12. MIDAZOLAM HCL [Concomitant]
  13. GLYCOPYRROLATE INJECTION, USP [Concomitant]

REACTIONS (11)
  - ARTERIOSPASM CORONARY [None]
  - ATRIAL FIBRILLATION [None]
  - CHEST PAIN [None]
  - HYPERHIDROSIS [None]
  - HYPOTENSION [None]
  - INGUINAL HERNIA REPAIR [None]
  - LEFT ATRIAL DILATATION [None]
  - LEFT VENTRICULAR HYPERTROPHY [None]
  - NAUSEA [None]
  - SEPTOPLASTY [None]
  - VOMITING [None]
